FAERS Safety Report 9528622 (Version 1)
Quarter: 2013Q3

REPORT INFORMATION
  Report Type: Spontaneous
  Country: US (occurrence: US)
  Receive Date: 20130917
  Receipt Date: 20130917
  Transmission Date: 20140515
  Serious: No
  Sender: FDA-Public Use
  Company Number: US-B.I. PHARMACEUTICALS,INC./RIDGEFIELD-2013-BI-27919BP

PATIENT
  Age: 61 Year
  Sex: Female
  Weight: 45 kg

DRUGS (9)
  1. COMBIVENT [Suspect]
     Indication: CHRONIC OBSTRUCTIVE PULMONARY DISEASE
     Dosage: STRENGTH: 20 MCG / 100 MCG; DAILY DOSE: 80 MCG/ 400 MCG
     Route: 055
     Dates: start: 201306
  2. CYMBALTA [Concomitant]
     Indication: HEADACHE
     Dosage: 60 MG
     Route: 048
  3. CYMBALTA [Concomitant]
     Indication: DEPRESSION
  4. TRAMADOL [Concomitant]
     Indication: HEADACHE
     Route: 048
  5. METHADONE [Concomitant]
     Indication: HEADACHE
     Dosage: 60 MG
     Route: 048
  6. METHADONE [Concomitant]
     Indication: NECK PAIN
  7. MEGESTROL [Concomitant]
     Indication: DECREASED APPETITE
     Dosage: 5 ML
     Route: 048
  8. NEURONTIN [Concomitant]
     Indication: NEURALGIA
     Dosage: 900 MG
     Route: 048
  9. DILAUDID [Concomitant]
     Indication: HEADACHE
     Route: 048

REACTIONS (5)
  - Anxiety [Not Recovered/Not Resolved]
  - Oral pain [Not Recovered/Not Resolved]
  - Mouth injury [Not Recovered/Not Resolved]
  - Dysphonia [Not Recovered/Not Resolved]
  - Throat irritation [Not Recovered/Not Resolved]
